FAERS Safety Report 9475495 (Version 1)
Quarter: 2013Q3

REPORT INFORMATION
  Report Type: Spontaneous
  Country: US (occurrence: None)
  Receive Date: 20130821
  Receipt Date: 20130821
  Transmission Date: 20140515
  Serious: Yes (Hospitalization, Other)
  Sender: FDA-Public Use
  Company Number: 201308000245

PATIENT
  Age: 5 Month
  Sex: Male

DRUGS (2)
  1. NITRIC OXIDE [Suspect]
     Indication: HYPOXIA
     Dosage: 20 PPM, CONTINUOUS, INHALATION
     Route: 055
  2. NITRIC OXIDE [Suspect]
     Indication: RESPIRATORY DISTRESS
     Dosage: 20 PPM, CONTINUOUS, INHALATION
     Route: 055

REACTIONS (3)
  - Pulmonary oedema [None]
  - Off label use [None]
  - Pulmonary hypertension [None]
